FAERS Safety Report 5884078-4 (Version None)
Quarter: 2008Q3

REPORT INFORMATION
  Report Type: 
  Country: None (occurrence: None)
  Receive Date: 20080915
  Receipt Date: 20080909
  Transmission Date: 20090109
  Serious: Yes (Other)
  Sender: FDA-Public Use
  Company Number: CA-ASTRAZENECA-2008UW18720

PATIENT
  Age: 68 Year
  Sex: Female

DRUGS (3)
  1. NEXIUM [Suspect]
     Route: 048
     Dates: start: 20080908
  2. HYDROCHLOROTHIAZIDE [Concomitant]
  3. CALCIUM [Concomitant]

REACTIONS (3)
  - ASTHENIA [None]
  - HEMIPLEGIA [None]
  - HYPOAESTHESIA [None]
